FAERS Safety Report 19728958 (Version 1)
Quarter: 2021Q3

REPORT INFORMATION
  Report Type: Spontaneous
  Country: CH (occurrence: CH)
  Receive Date: 20210820
  Receipt Date: 20210820
  Transmission Date: 20211014
  Serious: Yes (Other)
  Sender: FDA-Public Use
  Company Number: CH-FRESENIUS KABI-FK202108741

PATIENT
  Age: 42 Year
  Sex: Male

DRUGS (11)
  1. REMIFENTANIL (MANUFACTURER UNKNOWN) [Suspect]
     Active Substance: REMIFENTANIL
     Indication: STUPOR
     Dosage: UNK
     Route: 065
     Dates: start: 20210708, end: 20210708
  2. FENTANYL. [Concomitant]
     Active Substance: FENTANYL
     Dates: start: 20210708
  3. EPHEDRINE HYDROCHLORIDE [Concomitant]
     Active Substance: EPHEDRINE HYDROCHLORIDE
     Dates: start: 20210708
  4. ROCURONIUM BROMIDE. [Concomitant]
     Active Substance: ROCURONIUM BROMIDE
     Dates: start: 20210708
  5. DEXAMETHASONE SODIUM PHOSPHATE. [Concomitant]
     Active Substance: DEXAMETHASONE SODIUM PHOSPHATE
     Dosage: ONE TIME
     Dates: start: 20210708
  6. DICLOFENAC DIETHYLAMINE [Concomitant]
     Active Substance: DICLOFENAC DIETHYLAMINE
     Dates: start: 20210708
  7. PROPOFOL. [Concomitant]
     Active Substance: PROPOFOL
     Dosage: SINGLE ADMINISTRATION 977 UG
     Dates: start: 20210708
  8. CLONIDINE HYDROCHLORIDE. [Concomitant]
     Active Substance: CLONIDINE HYDROCHLORIDE
     Dates: start: 20210708
  9. SEVOFLURANE. [Suspect]
     Active Substance: SEVOFLURANE
     Indication: STUPOR
     Dosage: CONTENT IN EXHALED AIR
     Route: 065
     Dates: start: 20210708, end: 20210708
  10. NOREPINEPHRINE. [Concomitant]
     Active Substance: NOREPINEPHRINE
     Dates: start: 20210708
  11. NEOSTIGMINE METILSULFATE/GLYCOPYRRONIUM BROMIDE [Concomitant]
     Dosage: ONE TIME
     Dates: start: 20210708

REACTIONS (1)
  - Pulmonary alveolar haemorrhage [Recovering/Resolving]

NARRATIVE: CASE EVENT DATE: 20210708
